FAERS Safety Report 10728299 (Version 1)
Quarter: 2015Q1

REPORT INFORMATION
  Report Type: Spontaneous
  Country: GB (occurrence: GB)
  Receive Date: 20150121
  Receipt Date: 20150121
  Transmission Date: 20150721
  Serious: Yes (Other)
  Sender: FDA-Public Use
  Company Number: GB-ROCHE-1524056

PATIENT
  Sex: Male
  Weight: 68.4 kg

DRUGS (5)
  1. XOLAIR [Suspect]
     Active Substance: OMALIZUMAB
     Indication: ASTHMA
     Route: 058
     Dates: start: 20141120
  2. PREDNISOLONE. [Concomitant]
     Active Substance: PREDNISOLONE
  3. XOLAIR [Suspect]
     Active Substance: OMALIZUMAB
     Route: 058
     Dates: start: 20141231, end: 20141231
  4. SALBUTAMOL [Concomitant]
     Active Substance: ALBUTEROL
  5. PREDNISOLONE. [Concomitant]
     Active Substance: PREDNISOLONE

REACTIONS (1)
  - Hypersensitivity [Recovered/Resolved]
